FAERS Safety Report 19548937 (Version 1)
Quarter: 2021Q3

REPORT INFORMATION
  Report Type: Spontaneous
  Country: US (occurrence: US)
  Receive Date: 20210715
  Receipt Date: 20210715
  Transmission Date: 20211014
  Serious: No
  Sender: FDA-Public Use
  Company Number: None

PATIENT
  Age: 58 Year
  Sex: Male

DRUGS (1)
  1. CARVEDILOL [CARVEDILOL 6.25MG TAB] [Suspect]
     Active Substance: CARVEDILOL
     Route: 048
     Dates: start: 20210304, end: 20210601

REACTIONS (1)
  - Angioedema [None]

NARRATIVE: CASE EVENT DATE: 20210601
